FAERS Safety Report 24105674 (Version 1)
Quarter: 2024Q3

REPORT INFORMATION
  Report Type: Spontaneous
  Country: US (occurrence: None)
  Receive Date: 20240716
  Receipt Date: 20240716
  Transmission Date: 20241017
  Serious: Yes (Death)
  Sender: Public
  Company Number: None

PATIENT
  Age: 68 Year
  Sex: Female
  Weight: 67.5 kg

DRUGS (1)
  1. QUTENZA [Suspect]
     Active Substance: CAPSAICIN
     Dosage: OTHER FREQUENCY : EVERY 90 DAYS;?
     Route: 061
     Dates: start: 20230616, end: 20240715

REACTIONS (1)
  - Death [None]

NARRATIVE: CASE EVENT DATE: 20240716
